FAERS Safety Report 8584836-1 (Version None)
Quarter: 2012Q3

REPORT INFORMATION
  Report Type: 
  Country: None (occurrence: None)
  Receive Date: 20120730
  Receipt Date: 20120720
  Transmission Date: 20120928
  Serious: Yes (Other)
  Sender: FDA-Public Use
  Company Number: 7149619

PATIENT
  Age: 33 Year
  Sex: Female

DRUGS (1)
  1. LEVOTHYROXINE SODIUM [Suspect]
     Dosage: (100 MCG) ORAL
     Route: 048

REACTIONS (5)
  - LOCALISED OEDEMA [None]
  - SYNCOPE [None]
  - HYPERTHYROIDISM [None]
  - OVERDOSE [None]
  - FACE OEDEMA [None]
